FAERS Safety Report 18049825 (Version 4)
Quarter: 2020Q4

REPORT INFORMATION
  Report Type: Spontaneous
  Country: US (occurrence: US)
  Receive Date: 20200721
  Receipt Date: 20201012
  Transmission Date: 20210113
  Serious: Yes (Other)
  Sender: FDA-Public Use
  Company Number: US-BEH-2020120258

PATIENT
  Sex: Female

DRUGS (2)
  1. SUMATRIPTAN. [Suspect]
     Active Substance: SUMATRIPTAN
  2. HIZENTRA [Suspect]
     Active Substance: HUMAN IMMUNOGLOBULIN G
     Indication: IMMUNODEFICIENCY
     Dosage: 15 GRAM, QW
     Route: 058
     Dates: start: 20190618

REACTIONS (10)
  - Infection [Unknown]
  - Pharyngeal swelling [Unknown]
  - Illness [Unknown]
  - Swelling face [Unknown]
  - Headache [Unknown]
  - Paraesthesia [Unknown]
  - Swelling [Unknown]
  - Drug hypersensitivity [Unknown]
  - Lip swelling [Recovered/Resolved]
  - Sinusitis [Unknown]
